FAERS Safety Report 14946655 (Version 1)
Quarter: 2018Q2

REPORT INFORMATION
  Report Type: Spontaneous
  Country: FR (occurrence: FR)
  Receive Date: 20180529
  Receipt Date: 20180529
  Transmission Date: 20180711
  Serious: Yes (Other)
  Sender: FDA-Public Use
  Company Number: FR-MERCK KGAA-2048565

PATIENT
  Sex: Female

DRUGS (1)
  1. NOVOTHYROX [Suspect]
     Active Substance: LEVOTHYROXINE SODIUM
     Indication: PRODUCT USED FOR UNKNOWN INDICATION

REACTIONS (63)
  - Migraine [None]
  - Temperature regulation disorder [None]
  - Amnesia [None]
  - Fear [None]
  - Marital problem [None]
  - Agitation [None]
  - Hypersomnia [None]
  - Arthralgia [None]
  - Impatience [None]
  - Photophobia [None]
  - Tension [None]
  - Malaise [None]
  - Social avoidant behaviour [None]
  - Temporomandibular joint syndrome [None]
  - Pruritus [None]
  - Headache [None]
  - Vomiting [None]
  - Irritability [None]
  - Anxiety [None]
  - Abdominal pain upper [None]
  - Movement disorder [None]
  - Musculoskeletal stiffness [None]
  - Tendon pain [None]
  - Restless legs syndrome [None]
  - Clumsiness [None]
  - Diarrhoea [None]
  - Nervousness [None]
  - Mental impairment [None]
  - Stress [None]
  - Gait disturbance [None]
  - Tinnitus [None]
  - Dysphagia [None]
  - Loss of personal independence in daily activities [None]
  - Fatigue [None]
  - Temperature intolerance [None]
  - Asthenia [None]
  - Decreased activity [None]
  - Disturbance in attention [None]
  - Aphasia [None]
  - Vertigo [None]
  - Alopecia [None]
  - Mood swings [None]
  - Muscle spasms [None]
  - Nausea [None]
  - Depressed level of consciousness [None]
  - Musculoskeletal pain [None]
  - Discomfort [None]
  - Visual impairment [None]
  - Cervicobrachial syndrome [None]
  - Weight decreased [None]
  - Hypersensitivity [None]
  - Tension headache [None]
  - General physical condition abnormal [None]
  - Myalgia [None]
  - Dyspnoea [None]
  - Hyperhidrosis [None]
  - Insomnia [None]
  - Ligament pain [None]
  - Impaired work ability [None]
  - Mastication disorder [None]
  - Sensitivity of teeth [None]
  - Bruxism [None]
  - Restlessness [None]
